FAERS Safety Report 8862877 (Version 1)
Quarter: 2012Q4

REPORT INFORMATION
  Report Type: 
  Country: FR (occurrence: FR)
  Receive Date: 20121026
  Receipt Date: 20121026
  Transmission Date: 20130627
  Serious: Yes (Hospitalization, Other)
  Sender: FDA-Public Use
  Company Number: FR-PFIZER INC-2012261466

PATIENT
  Age: 57 Year
  Sex: Female

DRUGS (3)
  1. AROMASINE [Suspect]
     Indication: BREAST CANCER
     Dosage: 25 mg, 1x/day
     Route: 048
     Dates: start: 2012
  2. DOMPERIDONE [Concomitant]
  3. DOLIPRANE [Concomitant]

REACTIONS (6)
  - Renal vasculitis [Recovering/Resolving]
  - Nephrotic syndrome [Recovering/Resolving]
  - Renal failure [Recovering/Resolving]
  - Pulmonary mass [Unknown]
  - Pleural effusion [Unknown]
  - Anaemia [Unknown]
